FAERS Safety Report 8108347-2 (Version None)
Quarter: 2012Q1

REPORT INFORMATION
  Report Type: 
  Country: None (occurrence: None)
  Receive Date: 20120202
  Receipt Date: 20120125
  Transmission Date: 20120608
  Serious: Yes (Hospitalization)
  Sender: FDA-Public Use
  Company Number: PHHY2011JP92810

PATIENT
  Sex: Female
  Weight: 61 kg

DRUGS (3)
  1. TEGRETOL [Suspect]
     Indication: TRIGEMINAL NEURALGIA
     Dosage: 100 MG, QID
     Dates: start: 20101105, end: 20110105
  2. METHYCOBAL [Concomitant]
     Indication: TRIGEMINAL NEURALGIA
     Dosage: 1500 UG, UNK
     Route: 048
     Dates: start: 20101105, end: 20110105
  3. SELBEX [Concomitant]
     Indication: GASTRIC DISORDER
     Dosage: 150 MG, UNK
     Route: 048
     Dates: start: 20101105, end: 20110105

REACTIONS (6)
  - DRUG ERUPTION [None]
  - ORAL MUCOSA EROSION [None]
  - RASH GENERALISED [None]
  - RASH [None]
  - MOUTH ULCERATION [None]
  - BLOOD LACTATE DEHYDROGENASE INCREASED [None]
